FAERS Safety Report 10721523 (Version 2)
Quarter: 2015Q1

REPORT INFORMATION
  Report Type: Spontaneous
  Country: US (occurrence: US)
  Receive Date: 20150119
  Receipt Date: 20150127
  Transmission Date: 20150721
  Serious: Yes (Death, Hospitalization, Other)
  Sender: FDA-Public Use
  Company Number: US-BAYER-2015-005589

PATIENT
  Age: 11 Month
  Sex: Male

DRUGS (1)
  1. ACETYLSALICYLIC ACID (} 100 MG) [Suspect]
     Active Substance: ASPIRIN
     Dosage: 325 MG TABLES UNKNOWN NUMBER
     Route: 048

REACTIONS (15)
  - Petechiae [None]
  - Subarachnoid haemorrhage [None]
  - Subdural haemorrhage [None]
  - Tachypnoea [None]
  - Hyperthermia [None]
  - Hyperglycaemia [None]
  - Vomiting [None]
  - Cardiac arrest [Fatal]
  - Tachycardia [None]
  - Hypernatraemia [None]
  - Myocardial haemorrhage [None]
  - Toxicity to various agents [Fatal]
  - Cerebral haemorrhage [None]
  - Hypokalaemia [None]
  - Accidental overdose [Fatal]
